FAERS Safety Report 8889393 (Version 1)
Quarter: 2012Q4

REPORT INFORMATION
  Report Type: Spontaneous
  Country: US (occurrence: None)
  Receive Date: 20121102
  Receipt Date: 20121102
  Transmission Date: 20130627
  Serious: Yes (Life-Threatening, Disabling)
  Sender: FDA-Public Use
  Company Number: None

PATIENT
  Age: 54 Year
  Sex: Female
  Weight: 78.02 kg

DRUGS (2)
  1. NEURONTIN [Suspect]
     Indication: CHRONIC PAIN
     Route: 048
     Dates: start: 20110616, end: 20110802
  2. NEURONTIN [Suspect]
     Indication: CHRONIC PAIN
     Dates: end: 20120616

REACTIONS (9)
  - Asthenia [None]
  - Apathy [None]
  - Hypoaesthesia [None]
  - Activities of daily living impaired [None]
  - Drug hypersensitivity [None]
  - Food allergy [None]
  - Chest pain [None]
  - Dizziness [None]
  - Reaction to food additive [None]
